FAERS Safety Report 9454780 (Version 1)
Quarter: 2013Q3

REPORT INFORMATION
  Report Type: Spontaneous
  Country: US (occurrence: US)
  Receive Date: 20130812
  Receipt Date: 20130812
  Transmission Date: 20140515
  Serious: Yes (Other)
  Sender: FDA-Public Use
  Company Number: US-PFIZER INC-2013229572

PATIENT
  Sex: Female

DRUGS (1)
  1. LYRICA [Suspect]
     Indication: FIBROMYALGIA
     Dosage: UNK

REACTIONS (12)
  - Inappropriate schedule of drug administration [Unknown]
  - Sleep apnoea syndrome [Unknown]
  - Activities of daily living impaired [Unknown]
  - Weight decreased [Unknown]
  - Balance disorder [Unknown]
  - Gait disturbance [Unknown]
  - Impaired work ability [Unknown]
  - Fall [Unknown]
  - Amnesia [Unknown]
  - Tremor [Unknown]
  - Headache [Unknown]
  - Migraine [Unknown]
